FAERS Safety Report 9543968 (Version 1)
Quarter: 2013Q3

REPORT INFORMATION
  Report Type: Spontaneous
  Country: US (occurrence: US)
  Receive Date: 20130923
  Receipt Date: 20130923
  Transmission Date: 20140515
  Serious: No
  Sender: FDA-Public Use
  Company Number: US-ASTRAZENECA-2013SE64223

PATIENT
  Sex: Female

DRUGS (5)
  1. LISINOPRIL [Suspect]
     Indication: HYPERTENSION
     Route: 048
  2. COREG [Suspect]
     Indication: HYPERTENSION
     Route: 065
  3. CAPTOPRIL [Suspect]
     Indication: HYPERTENSION
     Route: 065
  4. SEVERAL MEDICATIONS [Concomitant]
     Indication: HYPERTENSION
  5. DIOVAN [Concomitant]
     Indication: HYPERTENSION

REACTIONS (2)
  - Regurgitation [Unknown]
  - Cough [Unknown]
